FAERS Safety Report 4370395-6 (Version None)
Quarter: 2004Q2

REPORT INFORMATION
  Report Type: 
  Country: None (occurrence: None)
  Receive Date: 20040527
  Receipt Date: 20040520
  Transmission Date: 20050107
  Serious: Yes (Death)
  Sender: FDA-Public Use
  Company Number: 200411745GDS

PATIENT
  Age: 62 Year
  Sex: Male

DRUGS (1)
  1. TRASYLOL [Suspect]
     Dates: end: 20040424

REACTIONS (2)
  - CARDIAC ARREST [None]
  - INTRACARDIAC THROMBUS [None]
